FAERS Safety Report 19198267 (Version 2)
Quarter: 2021Q2

REPORT INFORMATION
  Report Type: Spontaneous
  Country: US (occurrence: US)
  Receive Date: 20210430
  Receipt Date: 20210622
  Transmission Date: 20210717
  Serious: Yes (Life-Threatening, Hospitalization)
  Sender: FDA-Public Use
  Company Number: US-TEVA-2021-US-1904678

PATIENT
  Age: 2 Week
  Sex: Female
  Weight: .85 kg

DRUGS (3)
  1. ROCURONIUM BROMIDE. [Suspect]
     Active Substance: ROCURONIUM BROMIDE
     Indication: NEUROMUSCULAR BLOCKING THERAPY
     Dosage: 1.2 MG/KG DAILY;
     Route: 065
  2. ATROPINE. [Concomitant]
     Active Substance: ATROPINE
     Indication: PREMEDICATION
     Route: 065
  3. PROPOFOL. [Concomitant]
     Active Substance: PROPOFOL
     Indication: ANAESTHESIA
     Route: 065

REACTIONS (5)
  - Tracheomalacia [Unknown]
  - Hypoxia [Recovered/Resolved]
  - Bradycardia neonatal [Recovered/Resolved]
  - Neuromuscular blockade [Recovered/Resolved]
  - Neonatal hypoxia [Recovered/Resolved]
